FAERS Safety Report 25092106 (Version 1)
Quarter: 2025Q1

REPORT INFORMATION
  Report Type: Spontaneous
  Country: CA (occurrence: CA)
  Receive Date: 20250319
  Receipt Date: 20250319
  Transmission Date: 20250409
  Serious: Yes (Other)
  Sender: AMGEN
  Company Number: CA-AMGEN-CANSP2025049358

PATIENT
  Age: 2 Year
  Sex: Male

DRUGS (2)
  1. BLINATUMOMAB [Suspect]
     Active Substance: BLINATUMOMAB
     Indication: B precursor type acute leukaemia
     Route: 065
  2. VINCRISTINE [Concomitant]
     Active Substance: VINCRISTINE

REACTIONS (11)
  - Pneumatosis intestinalis [Unknown]
  - Failure to thrive [Unknown]
  - Weight decreased [Recovering/Resolving]
  - Stomatitis [Unknown]
  - Hypogammaglobulinaemia [Unknown]
  - Escherichia bacteraemia [Unknown]
  - Gastrointestinal disorder [Unknown]
  - Hypophagia [Unknown]
  - CD19 lymphocytes decreased [Recovering/Resolving]
  - Norovirus infection [Recovered/Resolved]
  - Diarrhoea [Unknown]
